FAERS Safety Report 9617753 (Version 6)
Quarter: 2014Q2

REPORT INFORMATION
  Report Type: Spontaneous
  Country: ES (occurrence: None)
  Receive Date: 20131009
  Receipt Date: 20140401
  Transmission Date: 20141212
  Serious: Yes (Hospitalization)
  Sender: FDA-Public Use
  Company Number: 2013ES002587

PATIENT
  Age: 60 Year
  Sex: Male

DRUGS (16)
  1. PONATINIB [Suspect]
     Indication: CHRONIC MYELOID LEUKAEMIA
     Route: 048
     Dates: start: 20130611, end: 20130928
  2. PLANTABEN (PLANTAGO OVITAL) [Concomitant]
  3. METFORMIN (METFORMIN) [Concomitant]
  4. CLOPIDOGREL (CLOPIDOGREL [Concomitant]
  5. ATENOLOL (ATENOLOL) [Concomitant]
  6. PIMECROLIMUS (PIMECROLIMUS) [Concomitant]
  7. GABAPENTIN (GABAPENTIN) [Concomitant]
  8. INSULIN (INSULIN PORCINE) [Concomitant]
  9. OMEPRAZOL (OMEPRAZOLE) [Concomitant]
  10. METAMIZOLE (METAMIZOLE SODIUM) [Concomitant]
  11. PARACETAMOL (PARACETAMOL) [Concomitant]
  12. METOCLOPRAMIDE (METOCLOPRAMIDE HYDORCHLORIDE) [Concomitant]
  13. LORAZEPAM (LORAZEPAM) [Concomitant]
  14. CLONAZEPAM (CLONAZEPAM) [Concomitant]
  15. PREGABALIN (PREGABALIN) [Concomitant]
  16. TRAMADOL (TRAMADOL HYDROCHLORIDE) [Concomitant]

REACTIONS (14)
  - Embolism [None]
  - Embolism [None]
  - Pain in extremity [None]
  - Musculoskeletal disorder [None]
  - Peripheral arterial occlusive disease [None]
  - No therapeutic response [None]
  - Arterial thrombosis [None]
  - C-reactive protein increased [None]
  - Aortic arteriosclerosis [None]
  - Peripheral artery aneurysm [None]
  - Peripheral arterial occlusive disease [None]
  - Femoral artery occlusion [None]
  - Arteriovenous fistula [None]
  - Peripheral artery thrombosis [None]
